FAERS Safety Report 8416663-X (Version None)
Quarter: 2012Q2

REPORT INFORMATION
  Report Type: 
  Country: None (occurrence: None)
  Receive Date: 20120530
  Receipt Date: 20120516
  Transmission Date: 20120825
  Serious: Yes (Hospitalization)
  Sender: FDA-Public Use
  Company Number: B0803986A

PATIENT
  Age: 25 Year
  Sex: Female

DRUGS (1)
  1. ALBUTEROL SULFATE [Suspect]
     Indication: PREMATURE LABOUR
     Dosage: 4 MG

REACTIONS (3)
  - MATERNAL EXPOSURE DURING PREGNANCY [None]
  - FLUID RETENTION [None]
  - PULMONARY OEDEMA [None]
